FAERS Safety Report 23827381 (Version 1)
Quarter: 2024Q2

REPORT INFORMATION
  Report Type: Other
  Country: US (occurrence: None)
  Receive Date: 20240507
  Receipt Date: 20240507
  Transmission Date: 20240716
  Serious: Yes (Death)
  Sender: FDA-Public Use
  Company Number: US-ROCHE-3559463

PATIENT
  Age: 61 Year
  Sex: Female

DRUGS (2)
  1. RITUXAN [Suspect]
     Active Substance: RITUXIMAB
     Indication: Diffuse large B-cell lymphoma
     Dosage: INFUSE 900MG INTRAVENOUSLY EVERY 14 DAY(S) FOR 12 DOSES,  50ML VIAL
     Route: 041
  2. RITUXAN [Suspect]
     Active Substance: RITUXIMAB
     Dosage: INFUSE 900MG INTRAVENOUSLY EVERY 14 DAY(S) FOR 12 DOSES,  10ML VIAL
     Route: 041

REACTIONS (1)
  - Death [Fatal]

NARRATIVE: CASE EVENT DATE: 20240505
